FAERS Safety Report 12245120 (Version 2)
Quarter: 2016Q2

REPORT INFORMATION
  Report Type: Spontaneous
  Country: US (occurrence: US)
  Receive Date: 20160407
  Receipt Date: 20160415
  Transmission Date: 20160815
  Serious: No
  Sender: FDA-Public Use
  Company Number: US-TEVA-626181USA

PATIENT
  Age: 47 Year
  Sex: Male

DRUGS (1)
  1. ZECUITY [Suspect]
     Active Substance: SUMATRIPTAN SUCCINATE
     Route: 062

REACTIONS (4)
  - Application site pruritus [Unknown]
  - Application site swelling [Unknown]
  - Application site erythema [Not Recovered/Not Resolved]
  - Application site bruise [Unknown]

NARRATIVE: CASE EVENT DATE: 20160207
